FAERS Safety Report 17950370 (Version 1)
Quarter: 2020Q2

REPORT INFORMATION
  Report Type: Spontaneous
  Country: US (occurrence: US)
  Receive Date: 20200626
  Receipt Date: 20200626
  Transmission Date: 20200714
  Serious: Yes (Hospitalization)
  Sender: FDA-Public Use
  Company Number: None

PATIENT
  Age: 63 Year
  Sex: Male
  Weight: 86 kg

DRUGS (5)
  1. MATRONIDAZOLE 500MG [Concomitant]
     Dates: start: 20200308, end: 20200315
  2. PIPERACILLIN-TAZOBACTAM 3.375 [Concomitant]
  3. OXYCODONE [Suspect]
     Active Substance: OXYCODONE
     Indication: PAIN
     Route: 048
     Dates: start: 20200308, end: 20200308
  4. CARVEDELOL 6.25MG [Concomitant]
     Dates: start: 20200308, end: 20200315
  5. DILAUDID [Suspect]
     Active Substance: HYDROMORPHONE HYDROCHLORIDE
     Dates: start: 20200308, end: 20200626

REACTIONS (3)
  - Abdominal pain lower [None]
  - Oxygen saturation decreased [None]
  - Unresponsive to stimuli [None]

NARRATIVE: CASE EVENT DATE: 20200308
